FAERS Safety Report 9518658 (Version 3)
Quarter: 2013Q4

REPORT INFORMATION
  Report Type: Report from Study
  Country: BR (occurrence: BR)
  Receive Date: 20130912
  Receipt Date: 20131118
  Transmission Date: 20140711
  Serious: Yes (Hospitalization, Other)
  Sender: FDA-Public Use
  Company Number: PHHY2013BR041835

PATIENT
  Age: 52 Year
  Sex: Female
  Weight: 83 kg

DRUGS (2)
  1. SANDOSTATIN LAR [Suspect]
     Indication: ACROMEGALY
     Dosage: 30 MG, QMO
     Dates: start: 200904
  2. SANDOSTATIN LAR [Suspect]
     Dosage: 30 MG, EVERY 28 DAYS
     Route: 030

REACTIONS (16)
  - Mastitis [Recovering/Resolving]
  - Dermatitis [Recovering/Resolving]
  - Erythema [Recovering/Resolving]
  - Diabetes insipidus [Recovering/Resolving]
  - Smooth muscle cell neoplasm [Unknown]
  - Breast cancer [Recovering/Resolving]
  - Metastases to bone [Recovering/Resolving]
  - Neoplasm [Unknown]
  - Mass [Unknown]
  - Bone cancer [Unknown]
  - Osteoarthritis [Unknown]
  - Pain in extremity [Recovered/Resolved]
  - Arthralgia [Unknown]
  - Infection [Recovering/Resolving]
  - Urinary incontinence [Recovering/Resolving]
  - Depressed mood [Not Recovered/Not Resolved]
